FAERS Safety Report 15492806 (Version 3)
Quarter: 2018Q4

REPORT INFORMATION
  Report Type: Spontaneous
  Country: HR (occurrence: HR)
  Receive Date: 20181012
  Receipt Date: 20181203
  Transmission Date: 20190205
  Serious: Yes (Other)
  Sender: FDA-Public Use
  Company Number: HR-BAYER-2018-185504

PATIENT
  Age: 80 Year
  Sex: Female

DRUGS (1)
  1. ASPIRIN PROTECT 100 MG [Suspect]
     Active Substance: ASPIRIN
     Indication: CEREBROVASCULAR ACCIDENT PROPHYLAXIS
     Dosage: 100 MG, QOD
     Dates: start: 2013

REACTIONS (7)
  - Joint injury [None]
  - Blood creatine phosphokinase increased [None]
  - Fall [None]
  - Back injury [None]
  - Ischaemic stroke [None]
  - Off label use [None]
  - Hemiparesis [None]

NARRATIVE: CASE EVENT DATE: 201706
